FAERS Safety Report 9554563 (Version 3)
Quarter: 2013Q4

REPORT INFORMATION
  Report Type: Spontaneous
  Country: JP (occurrence: JP)
  Receive Date: 20130925
  Receipt Date: 20131014
  Transmission Date: 20140711
  Serious: Yes (Other)
  Sender: FDA-Public Use
  Company Number: JP-TAKEDA-TPA2013A06290

PATIENT
  Sex: 0

DRUGS (2)
  1. FEBURIC [Suspect]
     Indication: HYPERURICAEMIA
     Dosage: 20 MG, QD
     Route: 048
     Dates: start: 20130518, end: 20130520
  2. BUFFERIN [Concomitant]
     Indication: GOUT
     Dosage: 2 DF, QD
     Route: 048
     Dates: start: 20130405, end: 201304

REACTIONS (5)
  - Syncope [Recovered/Resolved]
  - Gout [Recovered/Resolved]
  - Headache [Recovered/Resolved]
  - Nausea [Recovered/Resolved]
  - Malaise [Recovered/Resolved]
